FAERS Safety Report 19998377 (Version 1)
Quarter: 2021Q4

REPORT INFORMATION
  Report Type: Spontaneous
  Country: US (occurrence: US)
  Receive Date: 20211026
  Receipt Date: 20211026
  Transmission Date: 20220303
  Serious: Yes (Hospitalization, Other)
  Sender: FDA-Public Use
  Company Number: US-BIODELIVERY SCIENCES INTERNATIONAL-2021BDSI0487

PATIENT
  Age: 56 Year
  Sex: Female

DRUGS (1)
  1. BUPRENORPHINE\NALOXONE [Suspect]
     Active Substance: BUPRENORPHINE\NALOXONE
     Indication: Pain
     Dosage: NOT REPORTED
     Route: 065

REACTIONS (2)
  - Non-cardiogenic pulmonary oedema [Unknown]
  - Mental status changes [Unknown]
